FAERS Safety Report 6711207-2 (Version None)
Quarter: 2010Q2

REPORT INFORMATION
  Report Type: 
  Country: None (occurrence: None)
  Receive Date: 20100429
  Receipt Date: 20090611
  Transmission Date: 20101027
  Serious: Yes (Other)
  Sender: FDA-Public Use
  Company Number: 2009PV038402

PATIENT
  Age: 54 Year
  Sex: Female

DRUGS (3)
  1. SYMLIN [Suspect]
     Indication: TYPE 1 DIABETES MELLITUS
     Dosage: 60 MCG;BID;SC; 15 MCG;BID;SC;SC
     Route: 058
     Dates: start: 20070920, end: 20071101
  2. SYMLIN [Suspect]
     Indication: TYPE 1 DIABETES MELLITUS
     Dosage: 60 MCG;BID;SC; 15 MCG;BID;SC;SC
     Route: 058
     Dates: start: 20090301, end: 20090301
  3. SYMLIN [Suspect]
     Indication: TYPE 1 DIABETES MELLITUS
     Dosage: 60 MCG;BID;SC; 15 MCG;BID;SC;SC
     Route: 058
     Dates: start: 20090301

REACTIONS (1)
  - BLOOD GLUCOSE DECREASED [None]
